FAERS Safety Report 9236895 (Version 1)
Quarter: 2013Q2

REPORT INFORMATION
  Report Type: Spontaneous
  Country: US (occurrence: US)
  Receive Date: 20130417
  Receipt Date: 20130417
  Transmission Date: 20140414
  Serious: No
  Sender: FDA-Public Use
  Company Number: US-ASTRAZENECA-2013SE21281

PATIENT
  Age: 43 Year
  Sex: Male
  Weight: 103.4 kg

DRUGS (3)
  1. SEROQUEL [Suspect]
     Indication: BIPOLAR DISORDER
     Dosage: 2 OR 3 TABLETS DAILY
     Route: 048
     Dates: start: 200909, end: 2010
  2. AMITRIPTYLINE [Concomitant]
     Indication: DEPRESSION
     Dosage: UNKNOWN
  3. AMITRIPTYLINE [Concomitant]
     Indication: ANXIETY
     Dosage: UNKNOWN

REACTIONS (4)
  - Dental caries [Unknown]
  - Tooth fracture [Unknown]
  - Dental caries [Unknown]
  - Weight increased [Unknown]
